FAERS Safety Report 15754375 (Version 2)
Quarter: 2019Q3

REPORT INFORMATION
  Report Type: Report from Study
  Country: None (occurrence: US)
  Receive Date: 20181224
  Receipt Date: 20190916
  Transmission Date: 20191004
  Serious: Yes (Hospitalization, Other)
  Sender: FDA-Public Use
  Company Number: US-ABBVIE-18K-163-2501896-00

PATIENT
  Sex: Male

DRUGS (1)
  1. HUMIRA [Suspect]
     Active Substance: ADALIMUMAB
     Indication: PSORIASIS
     Route: 058
     Dates: end: 2018

REACTIONS (7)
  - Pulmonary embolism [Recovering/Resolving]
  - Impaired healing [Unknown]
  - Traumatic intracranial haemorrhage [Recovered/Resolved]
  - Brain injury [Recovered/Resolved]
  - Subdural haematoma [Recovered/Resolved]
  - Fall [Recovered/Resolved]
  - Post-traumatic amnestic disorder [Recovered/Resolved]

NARRATIVE: CASE EVENT DATE: 2018
